FAERS Safety Report 23843911 (Version 3)
Quarter: 2025Q4

REPORT INFORMATION
  Report Type: Spontaneous
  Country: US (occurrence: US)
  Receive Date: 20240510
  Receipt Date: 20251111
  Transmission Date: 20260117
  Serious: Yes (Other)
  Sender: SANOFI AVENTIS
  Company Number: US-SA-SAC20240501000104

PATIENT
  Sex: Male
  Weight: 50.8 kg

DRUGS (10)
  1. DUPIXENT [Suspect]
     Active Substance: DUPILUMAB
     Indication: Eosinophilic oesophagitis
     Dosage: 300 MG, QW
     Route: 058
  2. GENOTROPIN [Concomitant]
     Active Substance: SOMATROPIN
  3. OMNITROPE [Concomitant]
     Active Substance: SOMATROPIN
  4. VITAMIN D NOS [Concomitant]
     Active Substance: CHOLECALCIFEROL\ERGOCALCIFEROL
  5. CALCIUM [Concomitant]
     Active Substance: CALCIUM
  6. METHOTREXATE [Concomitant]
     Active Substance: METHOTREXATE
  7. REMICADE [Concomitant]
     Active Substance: INFLIXIMAB
  8. CELEBREX [Concomitant]
     Active Substance: CELECOXIB
  9. DICYCLOMINE HYDROCHLORIDE [Concomitant]
     Active Substance: DICYCLOMINE HYDROCHLORIDE
  10. PROBIOTICS NOS [Concomitant]
     Active Substance: PROBIOTICS NOS

REACTIONS (2)
  - Rheumatoid arthritis [Unknown]
  - Injection site pain [Recovering/Resolving]
